FAERS Safety Report 6828717-X (Version None)
Quarter: 2010Q3

REPORT INFORMATION
  Report Type: 
  Country: None (occurrence: None)
  Receive Date: 20100709
  Receipt Date: 20070220
  Transmission Date: 20110219
  Serious: No
  Sender: FDA-Public Use
  Company Number: US-PFIZER INC-2007013876

PATIENT
  Age: 47 Year
  Sex: Male
  Weight: 108.86 kg

DRUGS (9)
  1. CHANTIX [Suspect]
     Route: 048
  2. CARDIZEM [Concomitant]
  3. TRICOR [Concomitant]
  4. ZOCOR [Concomitant]
  5. ZETIA [Concomitant]
  6. PLAVIX [Concomitant]
  7. ACETYLSALICYLIC ACID [Concomitant]
  8. LASIX [Concomitant]
  9. BENICAR [Concomitant]

REACTIONS (4)
  - ABNORMAL DREAMS [None]
  - ACCIDENTAL OVERDOSE [None]
  - DRUG DOSE OMISSION [None]
  - FEELING ABNORMAL [None]
